FAERS Safety Report 19655078 (Version 1)
Quarter: 2021Q3

REPORT INFORMATION
  Report Type: Spontaneous
  Country: US (occurrence: US)
  Receive Date: 20210803
  Receipt Date: 20210803
  Transmission Date: 20211014
  Serious: No
  Sender: FDA-Public Use
  Company Number: US-AMGEN-USASP2021116911

PATIENT
  Age: 77 Year
  Sex: Male

DRUGS (1)
  1. OTEZLA [Suspect]
     Active Substance: APREMILAST
     Indication: PSORIASIS
     Dosage: UNK UNK, UNK (ONLY FROM SAMPLE PACK)
     Route: 048
     Dates: start: 202106, end: 2021

REACTIONS (3)
  - Psoriasis [Unknown]
  - Rash [Unknown]
  - Product supply issue [Unknown]

NARRATIVE: CASE EVENT DATE: 2021
